FAERS Safety Report 16849209 (Version 1)
Quarter: 2019Q3

REPORT INFORMATION
  Report Type: Spontaneous
  Country: US (occurrence: US)
  Receive Date: 20190802
  Receipt Date: 20190802
  Transmission Date: 20191005
  Serious: Yes (Hospitalization, Other)
  Sender: FDA-Public Use
  Company Number: None

PATIENT
  Age: 45 Year
  Sex: Male

DRUGS (19)
  1. XOPENEX HFA [Concomitant]
     Active Substance: LEVALBUTEROL TARTRATE
  2. METOLAZONE. [Concomitant]
     Active Substance: METOLAZONE
  3. CALCIUM CITRATE [Concomitant]
     Active Substance: CALCIUM CITRATE
  4. MVI [Concomitant]
     Active Substance: VITAMINS
  5. SUMATRIPTAN. [Concomitant]
     Active Substance: SUMATRIPTAN
  6. AMBRISENTAN 10MG TABLETS 30/BO: 10MG [Suspect]
     Active Substance: AMBRISENTAN
     Indication: PULMONARY ARTERIAL HYPERTENSION
     Route: 048
     Dates: start: 201108
  7. BENZONATATE. [Concomitant]
     Active Substance: BENZONATATE
  8. MUCINEX DM [Concomitant]
     Active Substance: DEXTROMETHORPHAN HYDROBROMIDE\GUAIFENESIN
  9. LASIX [Concomitant]
     Active Substance: FUROSEMIDE
  10. POTASSIUM CHLORIDE. [Concomitant]
     Active Substance: POTASSIUM CHLORIDE
  11. TADALAFIL. [Concomitant]
     Active Substance: TADALAFIL
  12. ALBUTEROL HFA [Concomitant]
     Active Substance: ALBUTEROL SULFATE
  13. ASTELIN [Concomitant]
     Active Substance: AZELASTINE HYDROCHLORIDE
  14. MIRTAZAPINE. [Concomitant]
     Active Substance: MIRTAZAPINE
  15. APIXABAN [Concomitant]
     Active Substance: APIXABAN
  16. TYVASO [Concomitant]
     Active Substance: TREPROSTINIL
  17. TORSEMIDE. [Concomitant]
     Active Substance: TORSEMIDE
  18. PANTOPRAZOLE [Concomitant]
     Active Substance: PANTOPRAZOLE
  19. SPIRONOLACTONE. [Concomitant]
     Active Substance: SPIRONOLACTONE

REACTIONS (4)
  - Condition aggravated [None]
  - Pulmonary arterial hypertension [None]
  - Acute respiratory failure [None]
  - Hypotension [None]

NARRATIVE: CASE EVENT DATE: 20190706
